FAERS Safety Report 4804186-6 (Version None)
Quarter: 2005Q4

REPORT INFORMATION
  Report Type: 
  Country: None (occurrence: None)
  Receive Date: 20051017
  Receipt Date: 20051003
  Transmission Date: 20060501
  Serious: Yes (Death)
  Sender: FDA-Public Use
  Company Number: B0395840A

PATIENT
  Age: 38 Year
  Sex: 0

DRUGS (4)
  1. PAROXETINE HCL [Suspect]
     Indication: DRUG USE FOR UNKNOWN INDICATION
  2. ASPIRIN + CARISOPRODOL (FORMULATION UKNOWN) (ASPIRIN + CARSOPRODOL) [Suspect]
     Indication: DRUG USE FOR UNKNOWN INDICATION
  3. ETHYLENE GLYCOL (FORMULATION UKNOWN) (ETHYLENE GLYCOL) [Suspect]
     Indication: DRUG USE FOR UNKNOWN INDICATION
  4. UNKNOWN (FORMULATION UNKNOWN) [Suspect]
     Indication: DRUG USE FOR UNKNOWN INDICATION

REACTIONS (1)
  - COMPLETED SUICIDE [None]
